FAERS Safety Report 17216932 (Version 1)
Quarter: 2019Q4

REPORT INFORMATION
  Report Type: Spontaneous
  Country: US (occurrence: US)
  Receive Date: 20191231
  Receipt Date: 20191231
  Transmission Date: 20200122
  Serious: Yes (Other)
  Sender: FDA-Public Use
  Company Number: US-MACLEODS PHARMACEUTICALS US LTD-MAC2019024594

PATIENT

DRUGS (3)
  1. ARIPIPRAZOLE. [Suspect]
     Active Substance: ARIPIPRAZOLE
     Indication: MENTAL DISORDER
     Dosage: 5 MG, GIVEN ON NOV 9, TITRATED UP TO 15 MG BY NOV 15 AND STOPPED BY 23 NOV
     Route: 065
  2. CLOZAPINE. [Concomitant]
     Active Substance: CLOZAPINE
     Indication: MENTAL DISORDER
     Dosage: 150 MILLIGRAM, AT 09:00 AM, 300 MILLIGRAM, AT 9:00 P.M.
     Route: 048
  3. CLOZAPINE. [Concomitant]
     Active Substance: CLOZAPINE
     Dosage: 150 MG/200 MG DAILY
     Route: 048

REACTIONS (1)
  - Pleurothotonus [Recovering/Resolving]
